FAERS Safety Report 16172873 (Version 1)
Quarter: 2019Q2

REPORT INFORMATION
  Report Type: Spontaneous
  Country: GB (occurrence: GB)
  Receive Date: 20190409
  Receipt Date: 20190409
  Transmission Date: 20190711
  Serious: Yes (Death, Other)
  Sender: FDA-Public Use
  Company Number: GB-AUROBINDO-AUR-APL-2019-018199

PATIENT

DRUGS (1)
  1. SERTRALINE [Suspect]
     Active Substance: SERTRALINE HYDROCHLORIDE
     Indication: PRODUCT USED FOR UNKNOWN INDICATION
     Dosage: UNK
     Route: 065
     Dates: start: 201807

REACTIONS (5)
  - Weight increased [Unknown]
  - Toxicity to various agents [Fatal]
  - Sudden cardiac death [Fatal]
  - Cardiac arrest [Fatal]
  - Back pain [Unknown]

NARRATIVE: CASE EVENT DATE: 2018
